FAERS Safety Report 14818509 (Version 1)
Quarter: 2018Q2

REPORT INFORMATION
  Report Type: Spontaneous
  Country: GR (occurrence: GR)
  Receive Date: 20180427
  Receipt Date: 20180427
  Transmission Date: 20180711
  Serious: Yes (Disabling)
  Sender: FDA-Public Use
  Company Number: GR-TEVA-2018-GR-884660

PATIENT
  Age: 64 Year
  Sex: Male

DRUGS (3)
  1. DEXATON [Concomitant]
  2. DEFRON [Concomitant]
  3. DOCETAXEL 80MG [Suspect]
     Active Substance: DOCETAXEL
     Indication: LUNG NEOPLASM MALIGNANT
     Dosage: START DATE: 6 MONTHS AGO, AMPOULES
     Route: 065

REACTIONS (2)
  - Gait inability [Unknown]
  - Hypoaesthesia [Unknown]
